FAERS Safety Report 8556474-8 (Version None)
Quarter: 2012Q3

REPORT INFORMATION
  Report Type: 
  Country: None (occurrence: None)
  Receive Date: 20120801
  Receipt Date: 20120730
  Transmission Date: 20120928
  Serious: Yes (Death)
  Sender: FDA-Public Use
  Company Number: PHHY2012PH065781

PATIENT
  Sex: Male

DRUGS (1)
  1. IMATINIB MESYLATE [Suspect]
     Dosage: 400 MG DAILY
     Route: 048
     Dates: start: 20110513

REACTIONS (2)
  - AZOTAEMIA [None]
  - RENAL FAILURE [None]
